FAERS Safety Report 6387982-6 (Version None)
Quarter: 2009Q3

REPORT INFORMATION
  Report Type: 
  Country: None (occurrence: None)
  Receive Date: 20090930
  Receipt Date: 20090918
  Transmission Date: 20100115
  Serious: Yes (Other)
  Sender: FDA-Public Use
  Company Number: 1000008195

PATIENT
  Age: 49 Year
  Sex: Female

DRUGS (1)
  1. LEXAPRO [Suspect]
     Dosage: (10 MG, ONCE), ORAL
     Route: 048

REACTIONS (4)
  - COMPUTERISED TOMOGRAM ABNORMAL [None]
  - GRAND MAL CONVULSION [None]
  - HALLUCINATION, VISUAL [None]
  - STRESS [None]
